FAERS Safety Report 9240583 (Version 2)
Quarter: 2013Q2

REPORT INFORMATION
  Report Type: Spontaneous
  Country: US (occurrence: US)
  Receive Date: 20130418
  Receipt Date: 20130619
  Transmission Date: 20140414
  Serious: No
  Sender: FDA-Public Use
  Company Number: US-VERTEX PHARMACEUTICALS INC.-2013-004937

PATIENT
  Sex: Male
  Weight: 116 kg

DRUGS (5)
  1. INCIVEK [Suspect]
     Indication: HEPATITIS C
     Dosage: 750 MG, TID
     Route: 048
     Dates: start: 201303, end: 201306
  2. RIBAVIRIN [Suspect]
     Indication: HEPATITIS C
     Dosage: 600 MG, BID
     Dates: start: 201303
  3. PEGASYS [Suspect]
     Indication: HEPATITIS C
     Dosage: 180 ?G, QW
     Route: 058
     Dates: start: 201303
  4. LOSARTAN HCT [Concomitant]
     Dosage: 1 DF, QD
  5. MULTIVITAMINS [Concomitant]

REACTIONS (8)
  - Neutropenia [Not Recovered/Not Resolved]
  - Injection site rash [Recovered/Resolved]
  - Anaemia [Unknown]
  - Rash papular [Recovered/Resolved]
  - Platelet count decreased [Not Recovered/Not Resolved]
  - Rectal haemorrhage [Recovered/Resolved]
  - Diarrhoea [Recovered/Resolved]
  - Dermatitis [Unknown]
